FAERS Safety Report 20903195 (Version 1)
Quarter: 2022Q2

REPORT INFORMATION
  Report Type: Spontaneous
  Country: JP (occurrence: JP)
  Receive Date: 20220601
  Receipt Date: 20220601
  Transmission Date: 20220720
  Serious: Yes (Death, Other)
  Sender: FDA-Public Use
  Company Number: JP-MSD-M2022-09008

PATIENT
  Sex: Male
  Weight: 41 kg

DRUGS (2)
  1. MOLNUPIRAVIR [Suspect]
     Active Substance: MOLNUPIRAVIR
     Indication: COVID-19 treatment
     Dosage: 800 MILLIGRAM, BID
     Route: 048
     Dates: start: 20220207, end: 20220211
  2. TULOBUTEROL [Concomitant]
     Active Substance: TULOBUTEROL
     Dosage: 1 DOSAGE FORM, QD

REACTIONS (1)
  - Corticobasal degeneration [Fatal]
